FAERS Safety Report 17050588 (Version 1)
Quarter: 2019Q4

REPORT INFORMATION
  Report Type: Spontaneous
  Country: JP (occurrence: JP)
  Receive Date: 20191119
  Receipt Date: 20191119
  Transmission Date: 20200122
  Serious: Yes (Hospitalization)
  Sender: FDA-Public Use
  Company Number: JP-BAXTER-2019BAX018516

PATIENT
  Age: 57 Year
  Sex: Female

DRUGS (14)
  1. PREDONINE [Suspect]
     Active Substance: PREDNISOLONE
     Dosage: THE DOSE OF PREDNISOLONE WAS REDUCED TO 7.5 MG/DAY
     Route: 065
  2. ENDOXAN [Suspect]
     Active Substance: CYCLOPHOSPHAMIDE
     Indication: GRANULOMATOSIS WITH POLYANGIITIS
     Route: 048
     Dates: start: 20180326
  3. PREDONINE [Suspect]
     Active Substance: PREDNISOLONE
     Dosage: THE DOSE OF PREDNISOLONE WAS INCREASED TO 20 MG/DAY AGAIN IN AUG
     Route: 065
  4. ENDOXAN [Suspect]
     Active Substance: CYCLOPHOSPHAMIDE
     Dosage: INCREASED TO 50 MG/DAY
     Route: 048
     Dates: start: 20180901
  5. PREDONINE [Suspect]
     Active Substance: PREDNISOLONE
     Dosage: ON UNKNOWN DATE, THE DOSE OF PREDNISOLONE WAS REDUCED TO 25 MG/DAY
     Route: 065
  6. PREDONINE [Suspect]
     Active Substance: PREDNISOLONE
     Dosage: THE DOSE OF PREDNISOLONE WAS REDUCED TO 12.5 MG/DAY
     Route: 065
  7. PREDONINE [Suspect]
     Active Substance: PREDNISOLONE
     Dosage: ON UNKNOWN DATE, THE DOSE OF PREDNISOLONE WAS REDUCED TO 20 MG/DAY
     Route: 065
  8. PREDONINE [Suspect]
     Active Substance: PREDNISOLONE
     Dosage: ON UNKNOWN DATE, THE DOSE OF PREDNISOLONE WAS REDUCED TO 15 MG/DAY
     Route: 065
  9. PREDONINE [Suspect]
     Active Substance: PREDNISOLONE
     Dosage: REDUCED TO 15 MG/DAY
     Route: 065
     Dates: start: 20180705, end: 20180811
  10. PREDONINE [Suspect]
     Active Substance: PREDNISOLONE
     Indication: GRANULOMATOSIS WITH POLYANGIITIS
     Route: 048
     Dates: start: 20180326, end: 20180415
  11. PREDONINE [Suspect]
     Active Substance: PREDNISOLONE
     Route: 065
     Dates: start: 20180416
  12. PREDONINE [Suspect]
     Active Substance: PREDNISOLONE
     Dosage: ON UNKNOWN DATE, THE DOSE OF PREDNISOLONE WAS INCREASED TO 30 MG/DAY.
     Route: 065
  13. PREDONINE [Suspect]
     Active Substance: PREDNISOLONE
     Dosage: ON UNKNOWN DATE, THE DOSE OF PREDNISOLONE WAS REDUCED TO 10 MG/DAY
     Route: 065
  14. PREDONINE [Suspect]
     Active Substance: PREDNISOLONE
     Dosage: DOSE OF PREDNISOLONE WAS REDUCED TO 20 MG/DAY
     Route: 065

REACTIONS (4)
  - Lumbar vertebral fracture [Recovered/Resolved]
  - Pelvic fracture [Recovered/Resolved]
  - Fractured sacrum [Recovered/Resolved]
  - Cushingoid [Not Recovered/Not Resolved]

NARRATIVE: CASE EVENT DATE: 20180607
